FAERS Safety Report 5846271-6 (Version None)
Quarter: 2008Q3

REPORT INFORMATION
  Report Type: 
  Country: None (occurrence: None)
  Receive Date: 20080815
  Receipt Date: 20080804
  Transmission Date: 20090109
  Serious: Yes (Hospitalization)
  Sender: FDA-Public Use
  Company Number: FR-JNJFOC-20080800859

PATIENT
  Age: 96 Year
  Sex: Female

DRUGS (11)
  1. REMICADE [Suspect]
     Indication: RHEUMATOID ARTHRITIS
     Dosage: TOTAL # INFUSIONS: 4
     Route: 042
  2. CORTANCYL [Concomitant]
  3. PROPOXYPHENE HCL AND ACETAMINOPHEN [Concomitant]
  4. FELODIPINE [Concomitant]
  5. NEXIUM [Concomitant]
  6. IMOVANE [Concomitant]
  7. OSTRAM [Concomitant]
  8. FONZYLANE [Concomitant]
  9. PROXILENE [Concomitant]
  10. DIFFU-K [Concomitant]
  11. TANAKAN [Concomitant]

REACTIONS (3)
  - OSTEITIS [None]
  - STAPHYLOCOCCAL INFECTION [None]
  - TOE AMPUTATION [None]
